FAERS Safety Report 25810363 (Version 2)
Quarter: 2025Q4

REPORT INFORMATION
  Report Type: Spontaneous
  Country: JP (occurrence: JP)
  Receive Date: 20250917
  Receipt Date: 20251010
  Transmission Date: 20260117
  Serious: No
  Sender: GALDERMA
  Company Number: JP-GALDERMA-JP2025017562

PATIENT

DRUGS (3)
  1. NEMOLIZUMAB [Suspect]
     Active Substance: NEMOLIZUMAB
     Indication: Dermatitis atopic
     Dosage: 30 MILLIGRAMS/ 4 WEEKS
     Route: 058
     Dates: start: 2024, end: 2024
  2. NEMOLIZUMAB [Suspect]
     Active Substance: NEMOLIZUMAB
     Dosage: 30 MILLIGRAMS/ 4 WEEKS
     Route: 058
  3. NEMOLIZUMAB [Suspect]
     Active Substance: NEMOLIZUMAB
     Dosage: 30 MILLIGRAMS/ 4 WEEKS
     Route: 058
     Dates: start: 20250909, end: 20250909

REACTIONS (1)
  - Dermatitis atopic [Recovered/Resolved]
